FAERS Safety Report 18408210 (Version 1)
Quarter: 2020Q4

REPORT INFORMATION
  Report Type: Spontaneous
  Country: IT (occurrence: IT)
  Receive Date: 20201021
  Receipt Date: 20201021
  Transmission Date: 20210114
  Serious: Yes (Other)
  Sender: FDA-Public Use
  Company Number: IT-AUROBINDO-AUR-APL-2020-048635

PATIENT
  Age: 70 Year
  Sex: Female

DRUGS (2)
  1. MIRTAZAPINE TABLET [Suspect]
     Active Substance: MIRTAZAPINE
     Indication: MAJOR DEPRESSION
     Dosage: UNK
     Route: 065
  2. MIRTAZAPINE TABLET [Suspect]
     Active Substance: MIRTAZAPINE
     Indication: MAJOR DEPRESSION

REACTIONS (3)
  - Photosensitivity reaction [Recovered/Resolved]
  - Telangiectasia [Recovered/Resolved]
  - Haemangioma [Recovered/Resolved]
